FAERS Safety Report 19898434 (Version 1)
Quarter: 2021Q3

REPORT INFORMATION
  Report Type: Spontaneous
  Country: DE (occurrence: DE)
  Receive Date: 20210929
  Receipt Date: 20210929
  Transmission Date: 20211014
  Serious: Yes (Hospitalization)
  Sender: FDA-Public Use
  Company Number: DE-MYLANLABS-2021M1066612

PATIENT
  Age: 78 Year
  Sex: Female

DRUGS (10)
  1. RIVAROXABAN [Concomitant]
     Active Substance: RIVAROXABAN
     Dosage: 15 MILLIGRAM, QD (15 MG, 1?0?0?0, TABLETTEN)
  2. CANDESARTAN. [Concomitant]
     Active Substance: CANDESARTAN
     Dosage: 25 MILLIGRAM, QD (25 MG, 1?0?0?0, TABLETTEN)
  3. PANTOPRAZOL                        /01263201/ [Concomitant]
     Active Substance: PANTOPRAZOLE
     Dosage: 20 MILLIGRAM (20 MG, BEI BEDARF, TABLETTEN)
  4. ATMADISC [Concomitant]
     Active Substance: FLUTICASONE PROPIONATE\SALMETEROL XINAFOATE
     Dosage: UNK UNK, BID (50|250 ?G, 1?0?1?0, DOSIERAEROSOL)
  5. FUROSEMID                          /00032601/ [Concomitant]
     Active Substance: FUROSEMIDE
     Dosage: 40 MILLIGRAM, QD (40 MG, 1?0?0?0, TABLETTEN)
  6. HYDROCHLOROTHIAZID [Concomitant]
     Active Substance: HYDROCHLOROTHIAZIDE
     Dosage: 25 MILLIGRAM, QD (25 MG, 1?0?0?0, TABLETTEN)
  7. ACETYLSALICYLIC ACID [Concomitant]
     Active Substance: ASPIRIN
     Dosage: 100 MILLIGRAM, QD (100 MG, 1?0?0?0, TABLETTEN)
  8. METOPROLOL. [Suspect]
     Active Substance: METOPROLOL
     Indication: PRODUCT USED FOR UNKNOWN INDICATION
     Dosage: 100 MILLIGRAM, BID (100 MG, 1?0?1?0, TABLETTEN)
  9. ATORVASTATIN [Concomitant]
     Active Substance: ATORVASTATIN
     Dosage: 40 MILLIGRAM, QD (40 MG, 0?0?1?0, TABLETTEN)
  10. ADENURIC [Concomitant]
     Active Substance: FEBUXOSTAT
     Dosage: 80 MILLIGRAM, QD (80 MG, 1?0?0?0, TABLETTEN)

REACTIONS (8)
  - Musculoskeletal pain [Recovering/Resolving]
  - Syncope [Recovering/Resolving]
  - Headache [Recovering/Resolving]
  - Pain [Unknown]
  - Amnesia [Recovering/Resolving]
  - Fall [Unknown]
  - Bradycardia [Recovering/Resolving]
  - Atrial fibrillation [Recovering/Resolving]
